FAERS Safety Report 9507075 (Version 1)
Quarter: 2013Q1

REPORT INFORMATION
  Report Type: Spontaneous
  Country: US (occurrence: None)
  Receive Date: 20130305
  Receipt Date: 20130305
  Transmission Date: 20140127
  Serious: Yes (Other)
  Sender: FDA-Public Use
  Company Number: 163-21880-12091017

PATIENT
  Age: 89 Year
  Sex: Female

DRUGS (4)
  1. REVLIMID [Suspect]
     Indication: CHRONIC LYMPHOCYTIC LEUKAEMIA
     Dosage: 5  MG , 14 IN 14 D,  PO
     Route: 048
     Dates: start: 20120228
  2. ACETAMINOPHEN (PARACETAMOL) [Concomitant]
  3. FUROSEMIDE (FUROSEMIDE) [Concomitant]
  4. LEVOFLOXACIN (LEVOFLOXACIN) [Concomitant]

REACTIONS (2)
  - Alopecia [None]
  - Anxiety [None]
